FAERS Safety Report 8236512-2 (Version None)
Quarter: 2012Q1

REPORT INFORMATION
  Report Type: 
  Country: None (occurrence: None)
  Receive Date: 20120327
  Receipt Date: 20120321
  Transmission Date: 20120608
  Serious: Yes (Other)
  Sender: FDA-Public Use
  Company Number: US-ASTELLAS-2012US003034

PATIENT
  Sex: Male

DRUGS (2)
  1. ERLOTINIB HYDROCHLORIDE [Suspect]
     Indication: NON-SMALL CELL LUNG CANCER
     Dosage: UNK
     Route: 048
  2. ERLOTINIB HYDROCHLORIDE [Suspect]
     Dosage: 25 MG, UID/QD
     Route: 048
     Dates: start: 20120317, end: 20120321

REACTIONS (2)
  - ABDOMINAL PAIN UPPER [None]
  - ABDOMINAL DISTENSION [None]
